FAERS Safety Report 4548448-9 (Version None)
Quarter: 2004Q4

REPORT INFORMATION
  Report Type: 
  Country: None (occurrence: None)
  Receive Date: 20041227
  Receipt Date: 20041025
  Transmission Date: 20050328
  Serious: Yes (Hospitalization)
  Sender: FDA-Public Use
  Company Number: 04P-163-0278592-00

PATIENT
  Age: 32 Year
  Sex: Female
  Weight: 65.7716 kg

DRUGS (8)
  1. HUMIRA [Suspect]
     Indication: RHEUMATOID ARTHRITIS
     Dosage: 1 IN 2 WK, SUBCUTANEOUS
     Route: 058
     Dates: start: 20030101, end: 20041001
  2. PERDNISONE [Concomitant]
  3. FOLIC ACID [Concomitant]
  4. OMEPRAZOLE [Concomitant]
  5. METHOTREXATE SODIUM [Concomitant]
  6. HYDROCHLOROTHIAZIDE [Concomitant]
  7. POTASSIUM [Concomitant]
  8. MULTI-VITAMINS [Concomitant]

REACTIONS (1)
  - STAPHYLOCOCCAL INFECTION [None]
